FAERS Safety Report 14453862 (Version 1)
Quarter: 2018Q1

REPORT INFORMATION
  Report Type: Spontaneous
  Country: FR (occurrence: FR)
  Receive Date: 20180129
  Receipt Date: 20180129
  Transmission Date: 20180509
  Serious: Yes (Life-Threatening, Hospitalization)
  Sender: FDA-Public Use
  Company Number: PHHY2018FR013430

PATIENT
  Age: 43 Year
  Sex: Male
  Weight: 74 kg

DRUGS (1)
  1. EXJADE [Suspect]
     Active Substance: DEFERASIROX
     Indication: HEREDITARY STOMATOCYTOSIS
     Dosage: 1 UG/LITRE, DAILY
     Route: 048
     Dates: start: 2015, end: 20171025

REACTIONS (1)
  - Hepatic failure [Recovered/Resolved]

NARRATIVE: CASE EVENT DATE: 201710
